FAERS Safety Report 11578226 (Version 2)
Quarter: 2015Q4

REPORT INFORMATION
  Report Type: Spontaneous
  Country: US (occurrence: US)
  Receive Date: 20150930
  Receipt Date: 20151002
  Transmission Date: 20160304
  Serious: No
  Sender: FDA-Public Use
  Company Number: CHPA2015US011529

PATIENT
  Sex: Female

DRUGS (1)
  1. VOLTAREN [Suspect]
     Active Substance: DICLOFENAC SODIUM
     Indication: PRODUCT USED FOR UNKNOWN INDICATION
     Dosage: UNK
     Route: 061
     Dates: start: 20150928, end: 20150928

REACTIONS (8)
  - Hypersensitivity [Unknown]
  - Urticaria [Unknown]
  - Throat tightness [Unknown]
  - Rash [Unknown]
  - Rhinorrhoea [Unknown]
  - Sensation of foreign body [Unknown]
  - Pruritus generalised [Unknown]
  - Lacrimation increased [Unknown]

NARRATIVE: CASE EVENT DATE: 20150928
